FAERS Safety Report 6960412-9 (Version None)
Quarter: 2010Q3

REPORT INFORMATION
  Report Type: 
  Country: None (occurrence: None)
  Receive Date: 20100823
  Receipt Date: 20100713
  Transmission Date: 20110219
  Serious: No
  Sender: FDA-Public Use
  Company Number: 015432

PATIENT
  Sex: Female

DRUGS (1)
  1. CIMZIA [Suspect]

REACTIONS (4)
  - ABDOMINAL PAIN LOWER [None]
  - CONDITION AGGRAVATED [None]
  - DIARRHOEA [None]
  - MUSCLE TIGHTNESS [None]
